FAERS Safety Report 19279915 (Version 1)
Quarter: 2021Q2

REPORT INFORMATION
  Report Type: Spontaneous
  Country: CN (occurrence: CN)
  Receive Date: 20210520
  Receipt Date: 20210520
  Transmission Date: 20210717
  Serious: Yes (Life-Threatening)
  Sender: FDA-Public Use
  Company Number: CN-BAXTER-2021BAX011670

PATIENT
  Age: 72 Year
  Sex: Male

DRUGS (2)
  1. 0.9% SODIUM CHLORIDE INJECTION [Suspect]
     Active Substance: SODIUM CHLORIDE
     Indication: MEDICATION DILUTION
     Route: 041
     Dates: start: 20210506, end: 20210506
  2. ROCEPHIN [Suspect]
     Active Substance: CEFTRIAXONE SODIUM
     Indication: CHRONIC OBSTRUCTIVE PULMONARY DISEASE
     Route: 041
     Dates: start: 20210506, end: 20210506

REACTIONS (1)
  - Anaphylactic shock [Recovering/Resolving]

NARRATIVE: CASE EVENT DATE: 20210506
